FAERS Safety Report 7180510-7 (Version None)
Quarter: 2010Q4

REPORT INFORMATION
  Report Type: 
  Country: None (occurrence: None)
  Receive Date: 20101221
  Receipt Date: 20101215
  Transmission Date: 20110411
  Serious: Yes (Hospitalization)
  Sender: FDA-Public Use
  Company Number: SE-BAXTER-2010BH030084

PATIENT
  Age: 49 Year
  Sex: Male

DRUGS (8)
  1. EXTRANEAL [Suspect]
     Indication: RENAL FAILURE CHRONIC
     Route: 033
     Dates: start: 20090101, end: 20100101
  2. EXTRANEAL [Suspect]
     Indication: PERITONEAL DIALYSIS
     Route: 033
     Dates: start: 20090101, end: 20100101
  3. EXTRANEAL [Suspect]
     Route: 033
     Dates: start: 20090101, end: 20100101
  4. EXTRANEAL [Suspect]
     Route: 033
     Dates: start: 20100601
  5. EXTRANEAL [Suspect]
     Route: 033
     Dates: start: 20100601
  6. EXTRANEAL [Suspect]
     Route: 033
     Dates: start: 20100601
  7. BALANCE [Concomitant]
     Indication: PRODUCT USED FOR UNKNOWN INDICATION
     Route: 033
  8. BALANCE [Concomitant]
     Route: 033

REACTIONS (1)
  - PERITONEAL CLOUDY EFFLUENT [None]
